FAERS Safety Report 4802373-4 (Version None)
Quarter: 2005Q4

REPORT INFORMATION
  Report Type: 
  Country: None (occurrence: None)
  Receive Date: 20051014
  Receipt Date: 20040911
  Transmission Date: 20060501
  Serious: Yes (Other)
  Sender: FDA-Public Use
  Company Number: 2004059192

PATIENT
  Sex: Male

DRUGS (1)
  1. NEURONTIN [Suspect]
     Indication: PAIN

REACTIONS (8)
  - ADVERSE EVENT [None]
  - AMNESIA [None]
  - BIPOLAR DISORDER [None]
  - DEPRESSION [None]
  - JOB DISSATISFACTION [None]
  - NEUROPATHY PERIPHERAL [None]
  - UNEVALUABLE EVENT [None]
  - VISUAL DISTURBANCE [None]
